FAERS Safety Report 16159839 (Version 1)
Quarter: 2019Q2

REPORT INFORMATION
  Report Type: Spontaneous
  Country: GB (occurrence: GB)
  Receive Date: 20190404
  Receipt Date: 20190404
  Transmission Date: 20190711
  Serious: Yes (Other)
  Sender: FDA-Public Use
  Company Number: GB-TEVA-2019-GB-1032980

PATIENT
  Age: 73 Year
  Sex: Female

DRUGS (9)
  1. CLOPIDOGREL [Suspect]
     Active Substance: CLOPIDOGREL BISULFATE
     Indication: ACUTE CORONARY SYNDROME
     Dosage: 75 MILLIGRAM DAILY;
     Route: 048
  2. MIRTAZAPINE. [Concomitant]
     Active Substance: MIRTAZAPINE
  3. PERINDOPRIL [Concomitant]
     Active Substance: PERINDOPRIL
  4. ACETYLSALICYLIC ACID [Concomitant]
     Active Substance: ASPIRIN
  5. OMEPRAZOLE. [Concomitant]
     Active Substance: OMEPRAZOLE
  6. ROSUVASTATIN. [Concomitant]
     Active Substance: ROSUVASTATIN
  7. LORAZEPAM. [Concomitant]
     Active Substance: LORAZEPAM
  8. IVABRADINE [Concomitant]
     Active Substance: IVABRADINE
  9. FUROSEMIDE. [Concomitant]
     Active Substance: FUROSEMIDE

REACTIONS (2)
  - Skin discolouration [Unknown]
  - Petechiae [Unknown]
